FAERS Safety Report 6418256-2 (Version None)
Quarter: 2009Q4

REPORT INFORMATION
  Report Type: 
  Country: None (occurrence: None)
  Receive Date: 20091028
  Receipt Date: 20091026
  Transmission Date: 20100525
  Serious: Yes (Other)
  Sender: FDA-Public Use
  Company Number: HU-ROXANE LABORATORIES, INC.-2009-RO-01097RO

PATIENT
  Age: 71 Year
  Sex: Female

DRUGS (3)
  1. LITHIUM CARBONATE [Suspect]
     Indication: CLUSTER HEADACHE
     Dates: start: 20060101
  2. LITHIUM CARBONATE [Suspect]
     Dates: start: 20071101
  3. VERAPAMIL [Suspect]
     Indication: CLUSTER HEADACHE

REACTIONS (4)
  - AMNESIA [None]
  - ARTERIOSCLEROSIS CORONARY ARTERY [None]
  - SLEEP-RELATED EATING DISORDER [None]
  - SOMNAMBULISM [None]
